FAERS Safety Report 25243256 (Version 1)
Quarter: 2025Q2

REPORT INFORMATION
  Report Type: Spontaneous
  Country: US (occurrence: US)
  Receive Date: 20250428
  Receipt Date: 20250428
  Transmission Date: 20250716
  Serious: Yes (Other)
  Sender: ZYDUS PHARM
  Company Number: US-CADILA HEALTHCARE LIMITED-US-ZYDUS-122302

PATIENT

DRUGS (5)
  1. AMLODIPINE [Suspect]
     Active Substance: AMLODIPINE BESYLATE
     Indication: Product used for unknown indication
     Route: 065
  2. METHYLENE BLUE [Suspect]
     Active Substance: METHYLENE BLUE
     Indication: Shock
     Route: 065
  3. CHARCOAL [Concomitant]
     Active Substance: ACTIVATED CHARCOAL
     Indication: Shock
     Route: 065
  4. GLUCAGON [Concomitant]
     Active Substance: GLUCAGON
     Indication: Product used for unknown indication
     Route: 065
  5. CALCIUM GLUCONATE [Concomitant]
     Active Substance: CALCIUM GLUCONATE
     Indication: Shock
     Route: 065

REACTIONS (5)
  - Lactic acidosis [Unknown]
  - Hyperglycaemia [Unknown]
  - Shock [Not Recovered/Not Resolved]
  - Drug ineffective [Unknown]
  - Intentional overdose [Unknown]
